FAERS Safety Report 6273988-4 (Version None)
Quarter: 2009Q3

REPORT INFORMATION
  Report Type: 
  Country: None (occurrence: None)
  Receive Date: 20090720
  Receipt Date: 20090713
  Transmission Date: 20100115
  Serious: Yes (Other)
  Sender: FDA-Public Use
  Company Number: CA-ASTRAZENECA-2009UW19612

PATIENT
  Sex: Female

DRUGS (6)
  1. ARIMIDEX [Suspect]
     Indication: BREAST CANCER
     Route: 048
     Dates: start: 20020101
  2. SYNTHROID [Concomitant]
     Indication: THYROID DISORDER
     Route: 048
  3. VITAMIN D [Concomitant]
     Route: 048
  4. LINOLEIC ACID [Concomitant]
  5. COENZYME Q10 [Concomitant]
  6. CLONAZEPAM [Concomitant]
     Indication: PANIC ATTACK
     Dosage: AT NIGHT

REACTIONS (17)
  - ALOPECIA [None]
  - BACK PAIN [None]
  - DECREASED APPETITE [None]
  - DRY MOUTH [None]
  - FATIGUE [None]
  - GINGIVAL RECESSION [None]
  - INSOMNIA [None]
  - MEMORY IMPAIRMENT [None]
  - MOBILITY DECREASED [None]
  - NAIL DISCOLOURATION [None]
  - NIGHT SWEATS [None]
  - OSTEOARTHRITIS [None]
  - PREMATURE AGEING [None]
  - SENSITIVITY OF TEETH [None]
  - SWELLING [None]
  - TOOTH DISCOLOURATION [None]
  - VISUAL ACUITY REDUCED [None]
